FAERS Safety Report 4422654-6 (Version None)
Quarter: 2004Q3

REPORT INFORMATION
  Report Type: 
  Country: None (occurrence: None)
  Receive Date: 20040810
  Receipt Date: 20040611
  Transmission Date: 20050211
  Serious: Yes (Life-Threatening, Hospitalization, Disabling)
  Sender: FDA-Public Use
  Company Number: US-MERCK-0406USA01380

PATIENT
  Age: 90 Year
  Sex: Male
  Weight: 75 kg

DRUGS (5)
  1. ADVICOR [Suspect]
     Route: 048
     Dates: start: 20040201, end: 20040215
  2. TOPROL-XL [Concomitant]
     Route: 065
     Dates: start: 20000101
  3. ALTACE [Concomitant]
     Route: 065
     Dates: start: 20000101
  4. VIOXX [Suspect]
     Route: 048
     Dates: start: 20040214, end: 20040214
  5. COUMADIN [Concomitant]
     Route: 065
     Dates: start: 20000101

REACTIONS (2)
  - DRUG INTERACTION [None]
  - RIGHT VENTRICULAR FAILURE [None]
